FAERS Safety Report 6421611-8 (Version None)
Quarter: 2009Q4

REPORT INFORMATION
  Report Type: 
  Country: None (occurrence: None)
  Receive Date: 20091030
  Receipt Date: 20091021
  Transmission Date: 20100525
  Serious: Yes (Hospitalization, Other)
  Sender: FDA-Public Use
  Company Number: JP-JNJFOC-20091004355

PATIENT
  Sex: Male

DRUGS (1)
  1. FINIBAX [Suspect]
     Indication: PNEUMONIA
     Dosage: TOTAL DOSE: 0.5 G
     Route: 041

REACTIONS (1)
  - HYPERKALAEMIA [None]
